FAERS Safety Report 25120983 (Version 1)
Quarter: 2025Q1

REPORT INFORMATION
  Report Type: Spontaneous
  Country: CN (occurrence: CN)
  Receive Date: 20250326
  Receipt Date: 20250326
  Transmission Date: 20250409
  Serious: Yes (Other)
  Sender: JIANGSU HANSOH PHARMACEUTICAL
  Company Number: CN-Jiangsu Hansoh Pharmaceutical Co., Ltd-2173682

PATIENT
  Age: 55 Year
  Sex: Male

DRUGS (2)
  1. VINORELBINE TARTRATE [Suspect]
     Active Substance: VINORELBINE TARTRATE
     Indication: Lung neoplasm malignant
     Dates: start: 20250305, end: 20250305
  2. CISPLATIN [Suspect]
     Active Substance: CISPLATIN
     Dates: start: 20250305, end: 20250305

REACTIONS (2)
  - Myelosuppression [Unknown]
  - Coma [Unknown]

NARRATIVE: CASE EVENT DATE: 20250308
